FAERS Safety Report 6888519-5 (Version None)
Quarter: 2010Q3

REPORT INFORMATION
  Report Type: 
  Country: None (occurrence: None)
  Receive Date: 20100730
  Receipt Date: 20100719
  Transmission Date: 20110219
  Serious: Yes (Hospitalization)
  Sender: FDA-Public Use
  Company Number: HR-WATSON-2010-09913

PATIENT
  Age: 42 Year
  Sex: Male

DRUGS (5)
  1. DIAZEPAM [Suspect]
     Indication: PSYCHOTIC DISORDER
     Dosage: 60 MG, DAILY
     Route: 048
  2. LORAZEPAM [Suspect]
     Indication: SCHIZOAFFECTIVE DISORDER
     Dosage: 900 MG, DAILY WHEN NEEDED
  3. HALOPERIDOL (WATSON LABORATORIES) [Suspect]
     Indication: SCHIZOAFFECTIVE DISORDER
     Dosage: 10 MG, DAILY
  4. RISPERIDONE [Suspect]
     Indication: PSYCHOTIC DISORDER
     Dosage: 1 MG/D X2 THEN 2 MG/D
  5. CLOZAPINE [Suspect]
     Indication: PSYCHOTIC DISORDER
     Dosage: 25 MG, DAILY

REACTIONS (1)
  - NEUROLEPTIC MALIGNANT SYNDROME [None]
